FAERS Safety Report 20349391 (Version 1)
Quarter: 2022Q1

REPORT INFORMATION
  Report Type: Spontaneous
  Country: FR (occurrence: FR)
  Receive Date: 20220119
  Receipt Date: 20220119
  Transmission Date: 20220423
  Serious: Yes (Hospitalization, Other)
  Sender: FDA-Public Use
  Company Number: FR-VALIDUS PHARMACEUTICALS LLC-FR-VDP-2022-014934

PATIENT

DRUGS (3)
  1. FUROSEMIDE [Suspect]
     Active Substance: FUROSEMIDE
     Indication: Atrial fibrillation
     Dosage: UNK
     Route: 048
     Dates: start: 20210929, end: 20211124
  2. CORDARONE [Suspect]
     Active Substance: AMIODARONE HYDROCHLORIDE
     Indication: Atrial fibrillation
     Dosage: UNK
     Route: 048
     Dates: start: 20210929, end: 20211124
  3. RAMIPRIL [Suspect]
     Active Substance: RAMIPRIL
     Indication: Atrial fibrillation
     Dosage: UNK
     Route: 048
     Dates: start: 20210929, end: 20211124

REACTIONS (1)
  - Toxic skin eruption [Recovered/Resolved]

NARRATIVE: CASE EVENT DATE: 20211116
